FAERS Safety Report 23468668 (Version 2)
Quarter: 2024Q1

REPORT INFORMATION
  Report Type: Report from Study
  Country: NL (occurrence: NL)
  Receive Date: 20240202
  Receipt Date: 20240218
  Transmission Date: 20240409
  Serious: Yes (Other)
  Sender: FDA-Public Use
  Company Number: NL-ABBVIE-4701552

PATIENT
  Age: 70 Year
  Sex: Female
  Weight: 83 kg

DRUGS (14)
  1. CARBIDOPA\LEVODOPA [Suspect]
     Active Substance: CARBIDOPA\LEVODOPA
     Indication: Parkinson^s disease
     Dosage: MD: 3.0ML CD: 1.4ML AD: 1.6ML ED: 0.3ML NCD: 1.1ML
     Route: 050
  2. CARBIDOPA\LEVODOPA [Suspect]
     Active Substance: CARBIDOPA\LEVODOPA
     Dosage: MD: 3.0ML CD: 1.2ML ED: 0.3ML NCD: 1.2ML
     Route: 050
  3. CARBIDOPA\LEVODOPA [Suspect]
     Active Substance: CARBIDOPA\LEVODOPA
     Dosage: MD: 3.0ML CD: 1.5ML ED: 0.3ML NCD: 1.1ML
     Route: 050
  4. CARBIDOPA\LEVODOPA [Suspect]
     Active Substance: CARBIDOPA\LEVODOPA
     Dosage: MD 3.0 ML; CD 1.5 ML/H; ED 0.5 ML; CND 1.3ML/H
     Route: 050
     Dates: start: 20240113
  5. CARBIDOPA\LEVODOPA [Suspect]
     Active Substance: CARBIDOPA\LEVODOPA
     Dosage: REMAINS AT 24 HOURS?MD: 3.0ML CD: 1.4ML AD: 1.6ML ED: 0.3ML NCD: 1.1ML
     Route: 050
  6. CARBIDOPA\LEVODOPA [Suspect]
     Active Substance: CARBIDOPA\LEVODOPA
     Dosage: MD: 3.0ML CD: 1.5ML AD: 1.7ML ED: 0.4ML NCD: 1.0ML
     Route: 050
  7. CARBIDOPA\LEVODOPA [Suspect]
     Active Substance: CARBIDOPA\LEVODOPA
     Dosage: MD 3.0 ML; CD 1.6 ML/H; ED 0.3 ML; CND 1.2 ML/H
     Route: 050
     Dates: start: 20231023, end: 20240113
  8. CARBIDOPA\LEVODOPA [Suspect]
     Active Substance: CARBIDOPA\LEVODOPA
     Dosage: REMAINS AT 24 HOURS?MD 3.0 ML; CD 1.6 ML/H; ED 0.3 ML; CND 1.2 ML/H
     Route: 050
  9. CARBIDOPA\LEVODOPA [Suspect]
     Active Substance: CARBIDOPA\LEVODOPA
     Dosage: REMAINS AT 16 HOURS?MD: 3.0ML CD: 1.2ML ED: 0.3ML NCD: 1.2ML
     Route: 050
  10. DOPAL [Concomitant]
     Indication: Parkinson^s disease
     Dosage: TIME INTERVAL: 0.33333333 DAYS: MUCUNA
  11. SINEMET [Concomitant]
     Active Substance: CARBIDOPA\LEVODOPA
     Indication: Parkinson^s disease
     Dosage: TIME INTERVAL: 0.14285714 DAYS: FORM STRENGTH: 62.5 MILLIGRAM
     Route: 048
  12. CITALOPRAM [Concomitant]
     Active Substance: CITALOPRAM HYDROBROMIDE
     Indication: Parkinson^s disease
     Dosage: 40 MILLIGRAM
     Route: 048
  13. BROMAZEPAM [Concomitant]
     Active Substance: BROMAZEPAM
     Indication: Parkinson^s disease
     Route: 048
  14. ACENOCOUMAROL [Concomitant]
     Active Substance: ACENOCOUMAROL
     Indication: Anticoagulant therapy
     Dosage: FREQUENCY TEXT: ACCORDING TO SCHEDULE
     Route: 048

REACTIONS (38)
  - Spinal stenosis [Not Recovered/Not Resolved]
  - Balance disorder [Not Recovered/Not Resolved]
  - Hallucination [Not Recovered/Not Resolved]
  - Parkinson^s disease [Not Recovered/Not Resolved]
  - Malaise [Not Recovered/Not Resolved]
  - Unevaluable event [Not Recovered/Not Resolved]
  - Discouragement [Not Recovered/Not Resolved]
  - Hyperphagia [Not Recovered/Not Resolved]
  - Stress [Not Recovered/Not Resolved]
  - Haemorrhage [Not Recovered/Not Resolved]
  - Weight increased [Not Recovered/Not Resolved]
  - Muscle spasms [Not Recovered/Not Resolved]
  - Binge eating [Not Recovered/Not Resolved]
  - Speech disorder [Not Recovered/Not Resolved]
  - Bradykinesia [Not Recovered/Not Resolved]
  - Fibroma [Not Recovered/Not Resolved]
  - Musculoskeletal stiffness [Not Recovered/Not Resolved]
  - Stoma site irritation [Not Recovered/Not Resolved]
  - Dyskinesia [Not Recovered/Not Resolved]
  - Hyperkinesia [Not Recovered/Not Resolved]
  - Gait disturbance [Not Recovered/Not Resolved]
  - Constipation [Not Recovered/Not Resolved]
  - Weight decreased [Unknown]
  - On and off phenomenon [Not Recovered/Not Resolved]
  - Hallucination, visual [Not Recovered/Not Resolved]
  - Listless [Not Recovered/Not Resolved]
  - Food allergy [Not Recovered/Not Resolved]
  - Fear [Unknown]
  - Asthenia [Not Recovered/Not Resolved]
  - Feeling abnormal [Not Recovered/Not Resolved]
  - Drug ineffective [Not Recovered/Not Resolved]
  - Stoma site reaction [Not Recovered/Not Resolved]
  - Stoma site discharge [Not Recovered/Not Resolved]
  - Emotional disorder [Recovered/Resolved]
  - Aggression [Not Recovered/Not Resolved]
  - Device use issue [Not Recovered/Not Resolved]
  - Osteoarthritis [Not Recovered/Not Resolved]
  - Pain [Not Recovered/Not Resolved]
